FAERS Safety Report 6880149-4 (Version None)
Quarter: 2010Q3

REPORT INFORMATION
  Report Type: 
  Country: None (occurrence: None)
  Receive Date: 20100728
  Receipt Date: 20100316
  Transmission Date: 20110219
  Serious: Yes (Other)
  Sender: FDA-Public Use
  Company Number: US-BRISTOL-MYERS SQUIBB COMPANY-14969570

PATIENT
  Age: 67 Year
  Sex: Female

DRUGS (1)
  1. SPRYCEL [Suspect]
     Indication: CHRONIC MYELOID LEUKAEMIA
     Dosage: 1DF- 1/2 TAB OF 50MG DAILY ON 02FEB10, 06FEB10
     Route: 048
     Dates: start: 20090101

REACTIONS (5)
  - DYSPNOEA [None]
  - LIP SWELLING [None]
  - NASAL CONGESTION [None]
  - RASH [None]
  - URTICARIA [None]
